FAERS Safety Report 19757327 (Version 3)
Quarter: 2021Q4

REPORT INFORMATION
  Report Type: Spontaneous
  Country: DE (occurrence: DE)
  Receive Date: 20210827
  Receipt Date: 20211224
  Transmission Date: 20220304
  Serious: Yes (Hospitalization, Other)
  Sender: FDA-Public Use
  Company Number: DE-NOVARTISPH-NVSC2021DE190908

PATIENT
  Age: 61 Year
  Sex: Male
  Weight: 64 kg

DRUGS (55)
  1. FLUOROURACIL [Suspect]
     Active Substance: FLUOROURACIL
     Indication: Colorectal cancer metastatic
     Dosage: 2110 MG
     Route: 042
     Dates: start: 20200427
  2. FLUOROURACIL [Suspect]
     Active Substance: FLUOROURACIL
     Dosage: 700 MG
     Route: 040
     Dates: start: 20200427
  3. FLUOROURACIL [Suspect]
     Active Substance: FLUOROURACIL
     Dosage: 2125 MG
     Route: 042
     Dates: start: 20200608
  4. FLUOROURACIL [Suspect]
     Active Substance: FLUOROURACIL
     Dosage: 2220 MG
     Route: 042
     Dates: start: 20200706
  5. FLUOROURACIL [Suspect]
     Active Substance: FLUOROURACIL
     Dosage: 735 MG
     Route: 040
     Dates: start: 20200706
  6. FLUOROURACIL [Suspect]
     Active Substance: FLUOROURACIL
     Dosage: 4440 MG
     Route: 042
     Dates: start: 20200803
  7. FLUOROURACIL [Suspect]
     Active Substance: FLUOROURACIL
     Dosage: 740 MG
     Route: 040
     Dates: start: 20200803
  8. FLUOROURACIL [Suspect]
     Active Substance: FLUOROURACIL
     Dosage: 4370 MG
     Route: 042
     Dates: start: 20200817
  9. FLUOROURACIL [Suspect]
     Active Substance: FLUOROURACIL
     Dosage: 730 MG
     Route: 040
     Dates: start: 20200817
  10. FLUOROURACIL [Suspect]
     Active Substance: FLUOROURACIL
     Dosage: 4270 MG
     Route: 042
     Dates: start: 20200928
  11. FLUOROURACIL [Suspect]
     Active Substance: FLUOROURACIL
     Dosage: 710 MG
     Route: 040
     Dates: start: 20200928
  12. FLUOROURACIL [Suspect]
     Active Substance: FLUOROURACIL
     Dosage: 4225 MG
     Route: 042
     Dates: start: 20201012
  13. FLUOROURACIL [Suspect]
     Active Substance: FLUOROURACIL
     Dosage: 700 MG
     Route: 040
     Dates: start: 20201012
  14. FLUOROURACIL [Suspect]
     Active Substance: FLUOROURACIL
     Dosage: 4150 MG
     Route: 042
     Dates: start: 20201026
  15. FLUOROURACIL [Suspect]
     Active Substance: FLUOROURACIL
     Dosage: 690 MG
     Route: 040
     Dates: start: 20201026
  16. FLUOROURACIL [Suspect]
     Active Substance: FLUOROURACIL
     Dosage: 4045 MG
     Route: 042
     Dates: start: 20201214
  17. FLUOROURACIL [Suspect]
     Active Substance: FLUOROURACIL
     Dosage: 680 MG
     Route: 040
     Dates: start: 20201214
  18. FLUOROURACIL [Suspect]
     Active Substance: FLUOROURACIL
     Dosage: 4250 MG
     Route: 042
     Dates: start: 20210317
  19. FLUOROURACIL [Suspect]
     Active Substance: FLUOROURACIL
     Dosage: 710 MG
     Route: 040
     Dates: start: 20210317
  20. FLUOROURACIL [Suspect]
     Active Substance: FLUOROURACIL
     Dosage: 4225 MG
     Route: 042
     Dates: start: 20210622
  21. FLUOROURACIL [Suspect]
     Active Substance: FLUOROURACIL
     Dosage: 700 MG
     Route: 040
     Dates: start: 20210622
  22. FLUOROURACIL [Suspect]
     Active Substance: FLUOROURACIL
     Dosage: 4320 MILLIGRAM
     Route: 042
     Dates: start: 20210706
  23. FLUOROURACIL [Suspect]
     Active Substance: FLUOROURACIL
     Dosage: 720 MG
     Route: 040
     Dates: start: 20210706
  24. OXALIPLATIN [Suspect]
     Active Substance: OXALIPLATIN
     Indication: Colorectal cancer metastatic
     Dosage: 150 MILLIGRAM
     Route: 065
     Dates: start: 20200427
  25. OXALIPLATIN [Suspect]
     Active Substance: OXALIPLATIN
     Dosage: 155 MG
     Route: 065
     Dates: start: 20200720
  26. LEUCOVORIN [Suspect]
     Active Substance: LEUCOVORIN
     Indication: Colorectal cancer metastatic
     Dosage: 350 MG
     Route: 065
     Dates: start: 20200427
  27. LEUCOVORIN [Suspect]
     Active Substance: LEUCOVORIN
     Dosage: 365 MG
     Route: 065
     Dates: start: 20200706
  28. LEUCOVORIN [Suspect]
     Active Substance: LEUCOVORIN
     Dosage: 740 MG
     Route: 065
     Dates: start: 20200803
  29. LEUCOVORIN [Suspect]
     Active Substance: LEUCOVORIN
     Dosage: 730 MG
     Route: 065
     Dates: start: 20200817
  30. LEUCOVORIN [Suspect]
     Active Substance: LEUCOVORIN
     Dosage: 710 MG
     Route: 065
     Dates: start: 20200928
  31. LEUCOVORIN [Suspect]
     Active Substance: LEUCOVORIN
     Dosage: 700 MG
     Route: 065
     Dates: start: 20201012
  32. LEUCOVORIN [Suspect]
     Active Substance: LEUCOVORIN
     Dosage: 690 MG
     Route: 065
     Dates: start: 20201026
  33. LEUCOVORIN [Suspect]
     Active Substance: LEUCOVORIN
     Dosage: 680 MG
     Route: 065
     Dates: start: 20201214
  34. LEUCOVORIN [Suspect]
     Active Substance: LEUCOVORIN
     Dosage: 710 MG
     Route: 065
     Dates: start: 20210317
  35. LEUCOVORIN [Suspect]
     Active Substance: LEUCOVORIN
     Dosage: 700 MG
     Route: 065
     Dates: start: 20210622
  36. LEUCOVORIN [Suspect]
     Active Substance: LEUCOVORIN
     Dosage: 720 MILLIGRAM
     Route: 065
     Dates: start: 20210706
  37. LEUCOVORIN [Suspect]
     Active Substance: LEUCOVORIN
     Dosage: 50 MG
     Route: 065
     Dates: start: 20210804
  38. VECTIBIX [Suspect]
     Active Substance: PANITUMUMAB
     Indication: Colorectal cancer metastatic
     Dosage: 380 MG
     Route: 042
     Dates: start: 20200427
  39. VECTIBIX [Suspect]
     Active Substance: PANITUMUMAB
     Dosage: 385 MG
     Route: 042
     Dates: start: 20200608
  40. VECTIBIX [Suspect]
     Active Substance: PANITUMUMAB
     Dosage: 425 MG
     Route: 042
     Dates: start: 20200706
  41. VECTIBIX [Suspect]
     Active Substance: PANITUMUMAB
     Dosage: 400 MG
     Route: 042
     Dates: start: 20200817
  42. VECTIBIX [Suspect]
     Active Substance: PANITUMUMAB
     Dosage: 390 MG
     Route: 042
     Dates: start: 20200928
  43. VECTIBIX [Suspect]
     Active Substance: PANITUMUMAB
     Dosage: 380 MG
     Route: 042
     Dates: start: 20201012
  44. VECTIBIX [Suspect]
     Active Substance: PANITUMUMAB
     Dosage: 365 MG
     Route: 042
     Dates: start: 20201026
  45. VECTIBIX [Suspect]
     Active Substance: PANITUMUMAB
     Dosage: 350 MG
     Route: 042
     Dates: start: 20201214
  46. VECTIBIX [Suspect]
     Active Substance: PANITUMUMAB
     Dosage: 365 MG
     Route: 042
     Dates: start: 20201230
  47. VECTIBIX [Suspect]
     Active Substance: PANITUMUMAB
     Dosage: 350 MG
     Route: 042
     Dates: start: 20210128
  48. VECTIBIX [Suspect]
     Active Substance: PANITUMUMAB
     Dosage: 385 MG
     Route: 042
     Dates: start: 20210317
  49. VECTIBIX [Suspect]
     Active Substance: PANITUMUMAB
     Dosage: 375 MG
     Route: 042
     Dates: start: 20210622
  50. VECTIBIX [Suspect]
     Active Substance: PANITUMUMAB
     Dosage: 395 MG
     Route: 042
     Dates: start: 20210706
  51. VECTIBIX [Suspect]
     Active Substance: PANITUMUMAB
     Dosage: 390 MILLIGRAM
     Route: 042
     Dates: start: 20201123
  52. VECTIBIX [Suspect]
     Active Substance: PANITUMUMAB
     Dosage: 400 MG
     Route: 065
     Dates: start: 20200803
  53. VECTIBIX [Suspect]
     Active Substance: PANITUMUMAB
     Dosage: 420 MG
     Route: 065
     Dates: start: 20200622
  54. VECTIBIX [Suspect]
     Active Substance: PANITUMUMAB
     Dosage: 375 MG
     Route: 065
     Dates: start: 20210608
  55. VECTIBIX [Suspect]
     Active Substance: PANITUMUMAB
     Dosage: 365 MG
     Route: 065
     Dates: start: 20201012

REACTIONS (2)
  - Pulmonary embolism [Recovering/Resolving]
  - Mechanical ileus [Recovered/Resolved]

NARRATIVE: CASE EVENT DATE: 20210520
